FAERS Safety Report 9563412 (Version 1)
Quarter: 2013Q3

REPORT INFORMATION
  Report Type: Spontaneous
  Country: GB (occurrence: None)
  Receive Date: 20130926
  Receipt Date: 20130926
  Transmission Date: 20140515
  Serious: Yes (Hospitalization, Other)
  Sender: FDA-Public Use
  Company Number: AUR-APL-2013-07881

PATIENT
  Age: 70 Year
  Sex: Female

DRUGS (7)
  1. FLUOXETINE [Suspect]
     Indication: DEPRESSION
     Route: 048
     Dates: start: 20070813, end: 20070830
  2. DOSULEPIN [Suspect]
     Indication: DEPRESSION
     Route: 048
  3. ALEDRONIC ACID (ALENDRONIC ACID) [Concomitant]
  4. CLOPIDOGREL (CLOPIDOGREL) [Concomitant]
  5. FOLIC ACID (FOLIC ACID) [Concomitant]
  6. MORPHINE SULPHATE (MORPHINE SULFATE) [Concomitant]
  7. PREDNISOLONE (PREDNISOLONE) [Concomitant]

REACTIONS (10)
  - Fall [None]
  - Disease recurrence [None]
  - Balance disorder [None]
  - Drug prescribing error [None]
  - Drug dispensing error [None]
  - Drug administration error [None]
  - Nasal cavity mass [None]
  - Schwannoma [None]
  - Paraganglion neoplasm [None]
  - Nuclear magnetic resonance imaging brain abnormal [None]
